FAERS Safety Report 7126170-2 (Version None)
Quarter: 2010Q4

REPORT INFORMATION
  Report Type: 
  Country: None (occurrence: None)
  Receive Date: 20101129
  Receipt Date: 20101122
  Transmission Date: 20110411
  Serious: Yes (Death, Hospitalization)
  Sender: FDA-Public Use
  Company Number: CO-ROCHE-743577

PATIENT
  Sex: Female

DRUGS (2)
  1. CELLCEPT [Suspect]
     Indication: SYSTEMIC LUPUS ERYTHEMATOSUS
     Dosage: FREQUENCY REPORTED : QD.
     Route: 048
     Dates: start: 20080315, end: 20100331
  2. MABTHERA [Suspect]
     Indication: SYSTEMIC LUPUS ERYTHEMATOSUS
     Dosage: FREQUENCY REPORTED :Q 15 DAY
     Route: 042
     Dates: start: 20100318, end: 20100331

REACTIONS (2)
  - DISEASE PROGRESSION [None]
  - SYSTEMIC LUPUS ERYTHEMATOSUS [None]
